FAERS Safety Report 4760457-3 (Version None)
Quarter: 2005Q3

REPORT INFORMATION
  Report Type: 
  Country: None (occurrence: None)
  Receive Date: 20050902
  Receipt Date: 20050802
  Transmission Date: 20060218
  Serious: Yes (Hospitalization)
  Sender: FDA-Public Use
  Company Number: JP-MERCK-0508USA01114

PATIENT
  Age: 27 Year
  Sex: Male
  Weight: 81 kg

DRUGS (1)
  1. CUPRIMINE [Suspect]
     Indication: HEPATO-LENTICULAR DEGENERATION
     Route: 048
     Dates: start: 19870101, end: 20010701

REACTIONS (3)
  - ASTHMA [None]
  - BRONCHIOLITIS [None]
  - EMPHYSEMA [None]
